FAERS Safety Report 9398337 (Version 1)
Quarter: 2013Q3

REPORT INFORMATION
  Report Type: Spontaneous
  Country: US (occurrence: US)
  Receive Date: 20130712
  Receipt Date: 20130712
  Transmission Date: 20140515
  Serious: No
  Sender: FDA-Public Use
  Company Number: US-GLAXOSMITHKLINE-A1005709A

PATIENT
  Age: 8 Year
  Sex: Male

DRUGS (4)
  1. FLOVENT [Suspect]
     Indication: ASTHMA
     Dosage: 2PUFF TWICE PER DAY
     Route: 055
     Dates: start: 2009
  2. VENTOLIN [Suspect]
     Indication: PRODUCT USED FOR UNKNOWN INDICATION
     Route: 055
  3. CLARITIN [Concomitant]
  4. ALBUTEROL [Concomitant]

REACTIONS (6)
  - Cough [Not Recovered/Not Resolved]
  - Ill-defined disorder [Unknown]
  - Respiratory tract congestion [Unknown]
  - Wheezing [Unknown]
  - Dyspnoea [Unknown]
  - Product quality issue [Unknown]
